FAERS Safety Report 11072040 (Version 1)
Quarter: 2015Q2

REPORT INFORMATION
  Report Type: Spontaneous
  Country: JP (occurrence: JP)
  Receive Date: 20150428
  Receipt Date: 20150428
  Transmission Date: 20150821
  Serious: Yes (Other)
  Sender: FDA-Public Use
  Company Number: JP-SA-2015SA049887

PATIENT
  Age: 32 Year
  Sex: Female

DRUGS (3)
  1. 5-FU [Concomitant]
     Active Substance: FLUOROURACIL
  2. LEVOFOLINATE [Suspect]
     Active Substance: LEVOLEUCOVORIN CALCIUM
     Indication: RECTAL CANCER
     Dosage: IV INFUSION
     Route: 041
  3. ELPLAT [Suspect]
     Active Substance: OXALIPLATIN
     Indication: RECTAL CANCER
     Dosage: INFUSION SOLUTION
     Route: 041

REACTIONS (2)
  - Premature rupture of membranes [Unknown]
  - Spinal fracture [Unknown]
